FAERS Safety Report 21866205 (Version 1)
Quarter: 2023Q1

REPORT INFORMATION
  Report Type: Spontaneous
  Country: DE (occurrence: DE)
  Receive Date: 20230116
  Receipt Date: 20230116
  Transmission Date: 20230417
  Serious: Yes (Hospitalization)
  Sender: FDA-Public Use
  Company Number: None

PATIENT
  Age: 56 Year
  Sex: Male

DRUGS (8)
  1. ARIPIPRAZOLE [Suspect]
     Active Substance: ARIPIPRAZOLE
     Indication: Product used for unknown indication
     Dates: end: 20220722
  2. CLOZAPINE [Suspect]
     Active Substance: CLOZAPINE
     Indication: Product used for unknown indication
     Dosage: FOR YEARS B.A.W.
  3. VALPROATE [Concomitant]
     Active Substance: VALPROIC ACID
     Dosage: FOR YEARS B.A.W.
  4. TAVOR [Concomitant]
     Dosage: FOR YEARS B.A.W.
  5. RAMIPRIL [Concomitant]
     Active Substance: RAMIPRIL
     Dosage: FOR YEARS B.A.W.
  6. TORSEMIDE [Concomitant]
     Active Substance: TORSEMIDE
     Dosage: FOR YEARS B.A.W.
  7. ARIPIPRAZOLE [Suspect]
     Active Substance: ARIPIPRAZOLE
     Indication: Product used for unknown indication
     Dates: end: 20220717
  8. ARIPIPRAZOLE [Suspect]
     Active Substance: ARIPIPRAZOLE
     Indication: Product used for unknown indication
     Dosage: SINCE YEARS
     Dates: end: 20220714

REACTIONS (1)
  - Dyskinesia [Recovered/Resolved]

NARRATIVE: CASE EVENT DATE: 20220622
